FAERS Safety Report 21129188 (Version 1)
Quarter: 2022Q3

REPORT INFORMATION
  Report Type: Spontaneous
  Country: CA (occurrence: CA)
  Receive Date: 20220725
  Receipt Date: 20220725
  Transmission Date: 20221027
  Serious: Yes (Other)
  Sender: FDA-Public Use
  Company Number: E2B_05041668

PATIENT
  Sex: Female

DRUGS (2)
  1. TRAMADOL [Suspect]
     Active Substance: TRAMADOL
     Indication: Product used for unknown indication
  2. ACETAMINOPHEN\OXYCODONE HYDROCHLORIDE [Suspect]
     Active Substance: ACETAMINOPHEN\OXYCODONE HYDROCHLORIDE
     Indication: Product used for unknown indication
     Route: 048

REACTIONS (9)
  - Tachycardia [Unknown]
  - Amnesia [Unknown]
  - Apathy [Unknown]
  - Dental caries [Unknown]
  - Depression [Unknown]
  - Diarrhoea [Unknown]
  - Disturbance in attention [Unknown]
  - Drug dependence [Unknown]
  - Mood swings [Unknown]
